FAERS Safety Report 26204859 (Version 2)
Quarter: 2025Q4

REPORT INFORMATION
  Report Type: Report from Study
  Country: CA (occurrence: CA)
  Receive Date: 20251227
  Receipt Date: 20251231
  Transmission Date: 20260118
  Serious: Yes (Hospitalization)
  Sender: CELLTRION
  Company Number: CA-CELLTRION INC.-2025CA046089

PATIENT

DRUGS (1)
  1. OMALIZUMAB [Suspect]
     Active Substance: OMALIZUMAB
     Indication: Chronic spontaneous urticaria
     Dosage: 300 MG EVERY 4 WEEKS (MAINTENANCE)
     Route: 058
     Dates: start: 20251022

REACTIONS (3)
  - Fall [Unknown]
  - Influenza [Unknown]
  - Intentional dose omission [Unknown]
